FAERS Safety Report 9377387 (Version 2)
Quarter: 2013Q3

REPORT INFORMATION
  Report Type: Spontaneous
  Country: SN (occurrence: SN)
  Receive Date: 20130701
  Receipt Date: 20130701
  Transmission Date: 20140515
  Serious: Yes (Hospitalization, Other)
  Sender: FDA-Public Use
  Company Number: SN-PFIZER INC-2013188199

PATIENT
  Age: 42 Year
  Sex: Male
  Weight: 98 kg

DRUGS (6)
  1. AMLODIPINE BESILATE [Suspect]
     Indication: HYPERTENSION
     Dosage: 10 MG, 1X/DAY
     Route: 065
  2. HYDROCHLOROTHIAZIDE (+) LISINOPRIL [Suspect]
     Dosage: 20/12.5 MG, 1X/DAY
     Route: 048
  3. ATENOLOL [Suspect]
     Indication: HYPERTENSION
     Dosage: 100 MG, 1X/DAY
     Route: 065
  4. ATENOLOL [Suspect]
     Dosage: 150 MG, 1X/DAY
     Route: 048
  5. NICARDIPINE [Suspect]
     Indication: PRODUCT USED FOR UNKNOWN INDICATION
     Dosage: 2-4 MG, HOURS
     Route: 042
  6. NICARDIPINE [Suspect]
     Dosage: 150 MG, 1X/DAY
     Route: 048

REACTIONS (2)
  - Blood pressure inadequately controlled [Recovered/Resolved]
  - Retinopathy hypertensive [Unknown]
